FAERS Safety Report 8394564 (Version 2)
Quarter: 2014Q4

REPORT INFORMATION
  Report Type: Spontaneous
  Country: US (occurrence: US)
  Receive Date: 20120207
  Receipt Date: 20141104
  Transmission Date: 20150529
  Serious: Yes (Hospitalization, Other)
  Sender: FDA-Public Use
  Company Number: US-GLAXOSMITHKLINE-B0723742A

PATIENT
  Age: 62 Year
  Sex: Female

DRUGS (1)
  1. AVANDIA [Suspect]
     Active Substance: ROSIGLITAZONE MALEATE
     Indication: DIABETES MELLITUS
     Dosage: 8 MG, UNK
     Route: 048
     Dates: start: 19990804, end: 20081206

REACTIONS (7)
  - Cardiac failure [Unknown]
  - Myocardial infarction [Not Recovered/Not Resolved]
  - Pancreatitis [Unknown]
  - Coronary artery disease [Unknown]
  - Gallbladder disorder [Unknown]
  - Nephropathy [Unknown]
  - Renal artery stenosis [Unknown]

NARRATIVE: CASE EVENT DATE: 200409
